FAERS Safety Report 9159789 (Version 1)
Quarter: 2013Q1

REPORT INFORMATION
  Report Type: Spontaneous
  Country: US (occurrence: None)
  Receive Date: 20130220
  Receipt Date: 20130220
  Transmission Date: 20140127
  Serious: Yes (Other)
  Sender: FDA-Public Use
  Company Number: AUR-APL-2013-01353

PATIENT
  Age: 45 Year
  Sex: Female

DRUGS (2)
  1. SULFAMETHOXAZOLE AND TRIMETHOPRIM (TRIMETHOPRIM, SULFAMETHOXAZOLE) [Suspect]
     Indication: PNEUMOCYSTIS JIROVECII PNEUMONIA
  2. LEVOFLOXACIN (LEVOFLOXACIN) [Concomitant]

REACTIONS (6)
  - Methaemoglobinaemia [None]
  - Agitation [None]
  - Chest pain [None]
  - Oxygen saturation decreased [None]
  - Sinus bradycardia [None]
  - Blood pressure decreased [None]
